FAERS Safety Report 6938577-4 (Version None)
Quarter: 2010Q3

REPORT INFORMATION
  Report Type: 
  Country: None (occurrence: None)
  Receive Date: 20100824
  Receipt Date: 20100819
  Transmission Date: 20110219
  Serious: Yes (Hospitalization)
  Sender: FDA-Public Use
  Company Number: US-GILEAD-2010-0031057

PATIENT
  Sex: Female
  Weight: 96.248 kg

DRUGS (25)
  1. LETAIRIS [Suspect]
     Indication: PULMONARY ARTERIAL HYPERTENSION
     Route: 048
     Dates: start: 20070918
  2. HYZAAR [Concomitant]
  3. INNOPRAN XL [Concomitant]
  4. DOXAZOSIN MESYLATE [Concomitant]
  5. CARVEDILOL [Concomitant]
  6. AMIODARONE [Concomitant]
  7. SPIRIVA [Concomitant]
  8. ADVAIR DISKUS 100/50 [Concomitant]
  9. ALBUTEROL [Concomitant]
  10. PREDNISONE [Concomitant]
  11. METFORMIN HCL [Concomitant]
  12. OMEPRAZOLE [Concomitant]
  13. FENOFIBRATE [Concomitant]
  14. SERTRALINE HYDROCHLORIDE [Concomitant]
  15. SYNTHROID [Concomitant]
  16. TRAZODONE HCL [Concomitant]
  17. CELEBREX [Concomitant]
  18. GABAPENTIN [Concomitant]
  19. FORTEO [Concomitant]
  20. VITAMIN B-12 [Concomitant]
  21. MULTI-VITAMIN [Concomitant]
  22. CALCIUM [Concomitant]
  23. VITAMIN B COMPLEX CAP [Concomitant]
  24. ACTIMMUNE [Concomitant]
  25. GINKOBA [Concomitant]

REACTIONS (3)
  - RESPIRATORY FAILURE [None]
  - SEPSIS [None]
  - SHOCK [None]
